FAERS Safety Report 23881155 (Version 1)
Quarter: 2024Q2

REPORT INFORMATION
  Report Type: Spontaneous
  Country: FR (occurrence: FR)
  Receive Date: 20240521
  Receipt Date: 20240521
  Transmission Date: 20240716
  Serious: Yes (Hospitalization)
  Sender: FDA-Public Use
  Company Number: FR-AFSSAPS-MP2024000193

PATIENT
  Age: 65 Year
  Sex: Male
  Weight: 76 kg

DRUGS (5)
  1. TADALAFIL [Suspect]
     Active Substance: TADALAFIL
     Indication: Product used for unknown indication
     Dosage: 5 MG EVERY OTHER DAY
     Route: 048
     Dates: end: 20240116
  2. ELIQUIS [Suspect]
     Active Substance: APIXABAN
     Indication: Peripheral artery thrombosis
     Dosage: 2.5 MILLIGRAM, BID
     Route: 048
     Dates: end: 20240109
  3. ELIQUIS [Suspect]
     Active Substance: APIXABAN
     Dosage: 5 MILLIGRAM, BID
     Route: 048
     Dates: start: 20240110
  4. LORLATINIB [Suspect]
     Active Substance: LORLATINIB
     Indication: Non-small cell lung cancer metastatic
     Dosage: 1 DOSAGE FORM, DAILY
     Route: 048
  5. REPATHA [Suspect]
     Active Substance: EVOLOCUMAB
     Indication: Hypercholesterolaemia
     Dosage: 140 MILLIGRAM, FORTNIGHT
     Route: 058
     Dates: start: 20231002

REACTIONS (1)
  - Peripheral ischaemia [Recovering/Resolving]

NARRATIVE: CASE EVENT DATE: 20240111
